FAERS Safety Report 5383494-7 (Version None)
Quarter: 2007Q3

REPORT INFORMATION
  Report Type: 
  Country: None (occurrence: None)
  Receive Date: 20070706
  Receipt Date: 20070620
  Transmission Date: 20080115
  Serious: Yes (Other)
  Sender: FDA-Public Use
  Company Number: 8025146

PATIENT
  Age: 32 Year
  Sex: Female

DRUGS (7)
  1. KEPPRA [Suspect]
     Indication: EPILEPSY
     Dosage: PO
     Route: 048
     Dates: start: 20020101
  2. LYRICA [Suspect]
     Dosage: 75 MG 1/D PO
     Route: 048
     Dates: start: 20050101, end: 20050101
  3. LYRICA [Suspect]
     Dosage: 75 MG 2/D PO
     Route: 048
     Dates: start: 20050101, end: 20050101
  4. LYRICA [Suspect]
     Dosage: 75 MG 1/D PO
     Route: 048
     Dates: start: 20050101
  5. LYRICA [Suspect]
     Dosage: 150 MG 2/D PO
     Route: 048
  6. LYRICA [Suspect]
     Dosage: 75 MG 3/D PO
     Route: 048
  7. PHENYTOIN [Suspect]
     Indication: EPILEPSY
     Dosage: PO
     Route: 048

REACTIONS (2)
  - DIZZINESS [None]
  - DYSARTHRIA [None]
